FAERS Safety Report 21559358 (Version 1)
Quarter: 2022Q4

REPORT INFORMATION
  Report Type: Spontaneous
  Country: AU (occurrence: AU)
  Receive Date: 20221107
  Receipt Date: 20221107
  Transmission Date: 20230113
  Serious: Yes (Hospitalization)
  Sender: FDA-Public Use
  Company Number: AU-MYLANLABS-2022M1119246

PATIENT
  Age: 23 Year
  Sex: Male

DRUGS (1)
  1. EMTRICITABINE\TENOFOVIR DISOPROXIL FUMARATE [Suspect]
     Active Substance: EMTRICITABINE\TENOFOVIR DISOPROXIL FUMARATE
     Indication: Viral infection
     Dosage: 300 MILLIGRAM, QD
     Route: 065
     Dates: start: 20221027, end: 20221027

REACTIONS (5)
  - Genital pain [Recovering/Resolving]
  - Proctalgia [Recovering/Resolving]
  - Genital discomfort [Recovering/Resolving]
  - Anorectal discomfort [Recovering/Resolving]
  - Pruritus [Recovering/Resolving]

NARRATIVE: CASE EVENT DATE: 20221027
